FAERS Safety Report 21850886 (Version 3)
Quarter: 2024Q2

REPORT INFORMATION
  Report Type: Report from Study
  Country: US (occurrence: US)
  Receive Date: 20230111
  Receipt Date: 20240517
  Transmission Date: 20240716
  Serious: No
  Sender: FDA-Public Use
  Company Number: US-ACADIA PHARMACEUTICALS INC.-ACA-2022-PIM-004397

PATIENT
  Sex: Male

DRUGS (1)
  1. NUPLAZID [Suspect]
     Active Substance: PIMAVANSERIN TARTRATE
     Indication: Parkinson^s disease
     Dosage: 34 MILLIGRAM, QD
     Route: 048
     Dates: start: 202202

REACTIONS (7)
  - Delusion [Unknown]
  - Feeling abnormal [Unknown]
  - Abnormal behaviour [Unknown]
  - Fatigue [Unknown]
  - Somnolence [Unknown]
  - Hallucination [Unknown]
  - Confusional state [Unknown]
